FAERS Safety Report 15235635 (Version 1)
Quarter: 2018Q3

REPORT INFORMATION
  Report Type: Spontaneous
  Country: US (occurrence: US)
  Receive Date: 20180709
  Receipt Date: 20180709
  Transmission Date: 20181010
  Serious: Yes (Life-Threatening)
  Sender: FDA-Public Use
  Company Number: None

PATIENT
  Age: 58 Year
  Sex: Female
  Weight: 59.4 kg

DRUGS (7)
  1. VITAMIN C [Concomitant]
     Active Substance: ASCORBIC ACID
  2. LIPITOR [Concomitant]
     Active Substance: ATORVASTATIN CALCIUM
  3. MULTIVITAMIN [Concomitant]
     Active Substance: VITAMINS
  4. LUNESTA [Concomitant]
     Active Substance: ESZOPICLONE
  5. CLINDAMYCIN. [Suspect]
     Active Substance: CLINDAMYCIN
     Indication: DENTAL CARE
     Dates: start: 20170525, end: 20170530
  6. SYNTHESIS [Concomitant]
  7. FLORASTER [Concomitant]

REACTIONS (6)
  - Sepsis [None]
  - Diarrhoea [None]
  - Clostridium difficile infection [None]
  - Nausea [None]
  - Faeces soft [None]
  - Back pain [None]

NARRATIVE: CASE EVENT DATE: 20170702
